FAERS Safety Report 6983153-0 (Version None)
Quarter: 2010Q3

REPORT INFORMATION
  Report Type: 
  Country: None (occurrence: None)
  Receive Date: 20100914
  Receipt Date: 20100707
  Transmission Date: 20110219
  Serious: No
  Sender: FDA-Public Use
  Company Number: US-PFIZER INC-2010071211

PATIENT
  Sex: Male
  Weight: 58.05 kg

DRUGS (3)
  1. LYRICA [Suspect]
     Indication: SPINAL COLUMN STENOSIS
     Dosage: 50 MG, 1X/DAY
     Route: 048
     Dates: start: 20100326, end: 20100607
  2. ACETYLSALICYLIC ACID [Concomitant]
     Dosage: UNK
  3. SIMVASTATIN [Concomitant]
     Indication: BLOOD CHOLESTEROL INCREASED
     Dosage: UNK

REACTIONS (3)
  - DISCOMFORT [None]
  - JOINT SWELLING [None]
  - OEDEMA PERIPHERAL [None]
